FAERS Safety Report 11556882 (Version 1)
Quarter: 2015Q3

REPORT INFORMATION
  Report Type: Spontaneous
  Country: US (occurrence: US)
  Receive Date: 20150916
  Receipt Date: 20150916
  Transmission Date: 20151125
  Serious: No
  Sender: FDA-Public Use
  Company Number: US-ELI_LILLY_AND_COMPANY-US200806003431

PATIENT
  Age: 85 Year
  Sex: Female

DRUGS (10)
  1. TOPROL XL [Concomitant]
     Active Substance: METOPROLOL SUCCINATE
  2. FORTEO [Suspect]
     Active Substance: TERIPARATIDE
     Dosage: UNK, UNK
     Dates: start: 200804, end: 2008
  3. COUMADIN [Concomitant]
     Active Substance: WARFARIN SODIUM
  4. CALCIUM [Concomitant]
     Active Substance: CALCIUM
  5. ASPIRIN. [Concomitant]
     Active Substance: ASPIRIN
  6. MULTIVITAMIN [Concomitant]
     Active Substance: VITAMINS
  7. VITAMIN C [Concomitant]
     Active Substance: ASCORBIC ACID
  8. LANOXIN [Concomitant]
     Active Substance: DIGOXIN
  9. VITAMIN D [Concomitant]
     Active Substance: CHOLECALCIFEROL
  10. CITRACAL [Concomitant]
     Active Substance: CALCIUM CITRATE

REACTIONS (8)
  - Constipation [Unknown]
  - Nausea [Unknown]
  - Pain [Unknown]
  - Arrhythmia [Unknown]
  - Blood calcium increased [Unknown]
  - Fatigue [Unknown]
  - Neck pain [Unknown]
  - Hypoacusis [Unknown]

NARRATIVE: CASE EVENT DATE: 2008
